FAERS Safety Report 4439206-4 (Version None)
Quarter: 2004Q3

REPORT INFORMATION
  Report Type: 
  Country: None (occurrence: None)
  Receive Date: 20040831
  Receipt Date: 20040630
  Transmission Date: 20050211
  Serious: Yes (Death)
  Sender: FDA-Public Use
  Company Number: USA040669945

PATIENT
  Age: 86 Year
  Sex: Female

DRUGS (2)
  1. FORTEO [Suspect]
     Indication: OSTEOPOROSIS
     Dosage: 20 UG DAY
     Dates: start: 20030308
  2. FENTANYL [Concomitant]

REACTIONS (5)
  - ABDOMINAL PAIN [None]
  - DIVERTICULITIS [None]
  - FAECAL OCCULT BLOOD POSITIVE [None]
  - INTESTINAL HAEMORRHAGE [None]
  - INTESTINAL PERFORATION [None]
